FAERS Safety Report 8515926-7 (Version None)
Quarter: 2012Q3

REPORT INFORMATION
  Report Type: 
  Country: None (occurrence: None)
  Receive Date: 20120717
  Receipt Date: 20120710
  Transmission Date: 20120928
  Serious: Yes (Other)
  Sender: FDA-Public Use
  Company Number: US-PFIZER INC-2012151122

PATIENT
  Sex: Male
  Weight: 105 kg

DRUGS (3)
  1. DIFLUCAN [Concomitant]
     Indication: INFECTION
     Dosage: 100 MG, UNK
  2. SODIUM CHLORIDE [Concomitant]
     Dosage: UNK
  3. DETROL LA [Suspect]
     Indication: BLADDER SPASM
     Dosage: 4 MG, 1X/DAY
     Route: 048
     Dates: start: 20120614

REACTIONS (1)
  - BLADDER SPASM [None]
